FAERS Safety Report 5502173-6 (Version None)
Quarter: 2007Q4

REPORT INFORMATION
  Report Type: 
  Country: None (occurrence: None)
  Receive Date: 20071030
  Receipt Date: 20071024
  Transmission Date: 20080405
  Serious: Yes (Other)
  Sender: FDA-Public Use
  Company Number: AT-ASTRAZENECA-2007PK02081

PATIENT
  Age: 47 Year
  Sex: Male

DRUGS (9)
  1. SEROQUEL [Suspect]
     Route: 048
     Dates: start: 20070412, end: 20070412
  2. SEROQUEL [Suspect]
     Route: 048
     Dates: start: 20070413, end: 20070413
  3. SEROQUEL [Suspect]
     Route: 048
     Dates: start: 20070414, end: 20070419
  4. SEROQUEL [Suspect]
     Route: 048
     Dates: start: 20070420, end: 20070420
  5. SEROQUEL [Suspect]
     Route: 048
     Dates: start: 20070421
  6. TEMESTA [Suspect]
     Dates: start: 20070416, end: 20070419
  7. TEMESTA [Suspect]
     Dates: start: 20070420
  8. RISPERDAL [Concomitant]
     Dates: start: 20070503, end: 20070530
  9. RISPERDAL [Concomitant]
     Dates: start: 20070531

REACTIONS (1)
  - HYPERSEXUALITY [None]
